FAERS Safety Report 24650805 (Version 2)
Quarter: 2025Q1

REPORT INFORMATION
  Report Type: Spontaneous
  Country: ES (occurrence: ES)
  Receive Date: 20241122
  Receipt Date: 20250114
  Transmission Date: 20250408
  Serious: Yes (Other)
  Sender: CSL BEHRING
  Company Number: ES-TAKEDA-2024TUS107553

PATIENT
  Age: 32 Year
  Sex: Female

DRUGS (2)
  1. HUMAN IMMUNOGLOBULIN G [Suspect]
     Active Substance: HUMAN IMMUNOGLOBULIN G
     Indication: Immunodeficiency common variable
     Route: 058
     Dates: start: 2018
  2. HYALURONIC ACID [Suspect]
     Active Substance: HYALURONIC ACID

REACTIONS (11)
  - Injection site necrosis [Recovered/Resolved]
  - Injection site ulcer [Recovered/Resolved]
  - Skin reaction [Unknown]
  - Injection site haematoma [Recovered/Resolved]
  - Blister [Recovered/Resolved]
  - Discharge [Recovered/Resolved]
  - Pain [Recovered/Resolved]
  - Injection site plaque [Recovered/Resolved]
  - Blister [Recovered/Resolved]
  - Erythema [Recovered/Resolved]
  - Oedema [Recovered/Resolved]

NARRATIVE: CASE EVENT DATE: 20180101
